FAERS Safety Report 24291507 (Version 1)
Quarter: 2024Q3

REPORT INFORMATION
  Report Type: Spontaneous
  Country: US (occurrence: None)
  Receive Date: 20240906
  Receipt Date: 20240906
  Transmission Date: 20241016
  Serious: No
  Sender: DOMPE FARMACEUTICI
  Company Number: US-FARMAPROD-202309-2770

PATIENT
  Sex: Male

DRUGS (17)
  1. OXERVATE [Suspect]
     Active Substance: CENEGERMIN-BKBJ
     Indication: Neurotrophic keratopathy
     Route: 047
     Dates: start: 20230821
  2. OXERVATE [Suspect]
     Active Substance: CENEGERMIN-BKBJ
  3. PANTOPRAZOLE SODIUM [Concomitant]
     Active Substance: PANTOPRAZOLE SODIUM
  4. PROBIOTIC 10B CELL [Concomitant]
     Dosage: 10 BILLION CELL
  5. ALLOPURINOL [Concomitant]
     Active Substance: ALLOPURINOL
  6. REFRESH TEARS [Concomitant]
     Active Substance: CARBOXYMETHYLCELLULOSE SODIUM
  7. JARDIANCE [Concomitant]
     Active Substance: EMPAGLIFLOZIN
  8. FEXOFENADINE HYDROCHLORIDE [Concomitant]
     Active Substance: FEXOFENADINE HYDROCHLORIDE
  9. PSEUDOEPHEDRINE [Concomitant]
     Active Substance: PSEUDOEPHEDRINE
  10. LORATADINE [Concomitant]
     Active Substance: LORATADINE
  11. FUROSEMIDE [Concomitant]
     Active Substance: FUROSEMIDE
  12. ATORVASTATIN CALCIUM [Concomitant]
     Active Substance: ATORVASTATIN CALCIUM
  13. METFORMIN HYDROCHLORIDE [Concomitant]
     Active Substance: METFORMIN HYDROCHLORIDE
  14. NADOLOL [Concomitant]
     Active Substance: NADOLOL
  15. LISINOPRIL [Concomitant]
     Active Substance: LISINOPRIL
  16. FLECAINIDE ACETATE [Concomitant]
     Active Substance: FLECAINIDE ACETATE
  17. JANUVIA [Concomitant]
     Active Substance: SITAGLIPTIN PHOSPHATE

REACTIONS (6)
  - Eye pain [Unknown]
  - Ocular discomfort [Unknown]
  - Ocular hyperaemia [Unknown]
  - Eye swelling [Unknown]
  - Off label use [Unknown]
  - Foreign body sensation in eyes [Unknown]
